FAERS Safety Report 8229560-X (Version None)
Quarter: 2012Q1

REPORT INFORMATION
  Report Type: 
  Country: None (occurrence: None)
  Receive Date: 20120322
  Receipt Date: 20120313
  Transmission Date: 20120608
  Serious: Yes (Other)
  Sender: FDA-Public Use
  Company Number: NL-ABBOTT-12P-114-0914455-00

PATIENT
  Age: 16 Year
  Sex: Female
  Weight: 64 kg

DRUGS (1)
  1. HUMIRA [Suspect]
     Indication: JUVENILE ARTHRITIS
     Route: 058
     Dates: start: 20080201

REACTIONS (2)
  - EXTRAPYRAMIDAL DISORDER [None]
  - HYPERTONIA [None]
